FAERS Safety Report 17638089 (Version 1)
Quarter: 2020Q2

REPORT INFORMATION
  Report Type: Spontaneous
  Country: US (occurrence: US)
  Receive Date: 20200406
  Receipt Date: 20200406
  Transmission Date: 20200713
  Serious: Yes (Hospitalization)
  Sender: FDA-Public Use
  Company Number: None

PATIENT
  Age: 71 Year
  Sex: Female

DRUGS (1)
  1. VERZENIO [Suspect]
     Active Substance: ABEMACICLIB
     Dosage: ?          OTHER DOSE:2 TABLETS;?
     Route: 048
     Dates: start: 20200118

REACTIONS (3)
  - Palpitations [None]
  - Chest pain [None]
  - Pain in jaw [None]

NARRATIVE: CASE EVENT DATE: 20200317
